FAERS Safety Report 5785728-3 (Version None)
Quarter: 2008Q2

REPORT INFORMATION
  Report Type: 
  Country: None (occurrence: None)
  Receive Date: 20080624
  Receipt Date: 20070426
  Transmission Date: 20081010
  Serious: No
  Sender: FDA-Public Use
  Company Number: US-ASTRAZENECA-2007UW08154

PATIENT
  Age: 8 Year
  Sex: Male
  Weight: 58.1 kg

DRUGS (5)
  1. PULMICORT RESPULES [Suspect]
     Indication: ASTHMA
     Route: 055
     Dates: start: 20040101
  2. ALBUTEROL [Concomitant]
  3. OTHER ASTHMA DRUGS [Concomitant]
  4. ZYRTEC [Concomitant]
  5. ALLERGY SHOTS [Concomitant]

REACTIONS (1)
  - SPEECH DISORDER [None]
